FAERS Safety Report 8164011-5 (Version None)
Quarter: 2012Q1

REPORT INFORMATION
  Report Type: 
  Country: None (occurrence: None)
  Receive Date: 20120224
  Receipt Date: 20120214
  Transmission Date: 20120608
  Serious: Yes (Other)
  Sender: FDA-Public Use
  Company Number: PHEH2012US003861

PATIENT
  Sex: Female
  Weight: 57 kg

DRUGS (9)
  1. TASIGNA [Concomitant]
  2. PRILOSEC [Concomitant]
  3. SERTRALINE HYDROCHLORIDE [Concomitant]
  4. SYNTHROID [Concomitant]
  5. VITAMIN D [Concomitant]
  6. GLEEVEC [Suspect]
     Indication: CHRONIC MYELOID LEUKAEMIA
  7. GLIPIZIDE [Concomitant]
  8. DOXEPIN HCL [Concomitant]
  9. TRAZODONE HCL [Concomitant]

REACTIONS (6)
  - NEOPLASM [None]
  - RASH [None]
  - FATIGUE [None]
  - DIARRHOEA [None]
  - PERIORBITAL OEDEMA [None]
  - ECZEMA [None]
